FAERS Safety Report 7328689-8 (Version None)
Quarter: 2011Q1

REPORT INFORMATION
  Report Type: 
  Country: None (occurrence: None)
  Receive Date: 20110225
  Receipt Date: 20110225
  Transmission Date: 20110831
  Serious: Yes (Other)
  Sender: FDA-Public Use
  Company Number: None

PATIENT
  Age: 58 Year
  Sex: Male
  Weight: 106.5953 kg

DRUGS (1)
  1. HYDROMET SYRUP ACTIVIS [Suspect]
     Indication: NASOPHARYNGITIS
     Dosage: 1 TEASPOON 1X PO
     Route: 048
     Dates: start: 20110217, end: 20110217

REACTIONS (1)
  - DRUG HYPERSENSITIVITY [None]
